FAERS Safety Report 19649601 (Version 2)
Quarter: 2021Q3

REPORT INFORMATION
  Report Type: Report from Study
  Country: US (occurrence: US)
  Receive Date: 20210802
  Receipt Date: 20210929
  Transmission Date: 20211014
  Serious: Yes (Hospitalization, Other)
  Sender: FDA-Public Use
  Company Number: US-VANDA PHARMACEUTICALS, INC-2021ILOUS001847

PATIENT
  Age: 43 Year
  Sex: Female
  Weight: 107.5 kg

DRUGS (9)
  1. ILOPERIDONE. [Suspect]
     Active Substance: ILOPERIDONE
     Indication: BIPOLAR I DISORDER
     Dosage: 12 MILLIGRAM, BID (1 CAP 8AM, 1 CAP 6PM)
     Route: 048
     Dates: start: 20210603, end: 20210718
  2. TYLENOL EXTRA STRENGTH [Concomitant]
     Active Substance: ACETAMINOPHEN
     Indication: MIGRAINE
     Dosage: 1000 MILLIGRAM, PRN
     Route: 048
     Dates: start: 2008
  3. AMLODIPINE [Concomitant]
     Active Substance: AMLODIPINE BESYLATE
     Indication: HYPERTENSION
     Dosage: 10 MILLIGRAM, QD
     Route: 048
     Dates: start: 2020
  4. IBUPROFEN. [Concomitant]
     Active Substance: IBUPROFEN
     Indication: MIGRAINE
     Dosage: 400 MILLIGRAM, PRN
     Route: 048
     Dates: start: 2008
  5. PREDNISONE ACETATE [Concomitant]
     Active Substance: PREDNISONE ACETATE
     Indication: OPHTHALMIC HERPES SIMPLEX
     Dosage: 1 DROP, TID IN EACH EYE
     Route: 047
     Dates: start: 2015
  6. BRIMONIDINE TARTRATE. [Concomitant]
     Active Substance: BRIMONIDINE TARTRATE
     Indication: INTRAOCULAR PRESSURE INCREASED
     Dosage: 1 DROP, QD IN EACH EYE
     Route: 047
     Dates: start: 2020
  7. ESOMEPRAZOLE. [Concomitant]
     Active Substance: ESOMEPRAZOLE MAGNESIUM
     Indication: GASTROOESOPHAGEAL REFLUX DISEASE
     Dosage: 20 MILLIGRAM, QD
     Route: 048
     Dates: start: 2019
  8. VALACICLOVIR [Concomitant]
     Active Substance: VALACYCLOVIR HYDROCHLORIDE
     Indication: OPHTHALMIC HERPES SIMPLEX
     Dosage: 500 MILLIGRAM, TID
     Route: 048
     Dates: start: 2020
  9. DORZOLAMIDE HCL [Concomitant]
     Active Substance: DORZOLAMIDE HYDROCHLORIDE
     Indication: INTRAOCULAR PRESSURE INCREASED
     Dosage: 1 DROP, BID IN EACH EYE
     Dates: start: 2020

REACTIONS (1)
  - Mesenteric artery thrombosis [Recovered/Resolved]

NARRATIVE: CASE EVENT DATE: 20210718
